FAERS Safety Report 17826230 (Version 2)
Quarter: 2020Q3

REPORT INFORMATION
  Report Type: Spontaneous
  Country: US (occurrence: US)
  Receive Date: 20200526
  Receipt Date: 20200702
  Transmission Date: 20201102
  Serious: Yes (Other)
  Sender: FDA-Public Use
  Company Number: US-009507513-2005USA007481

PATIENT
  Age: 18 Year
  Sex: Female
  Weight: 46.26 kg

DRUGS (2)
  1. MIDOL (ASPIRIN (+) CAFFEINE (+) CINNAMEDRINE) [Concomitant]
     Dosage: UNK
  2. NEXPLANON [Suspect]
     Active Substance: ETONOGESTREL
     Indication: CONTRACEPTION
     Dosage: 1 ROD EVERY 3 YEARS, (LEFT IMPLANT)
     Route: 059
     Dates: start: 20190716

REACTIONS (8)
  - Angina pectoris [Not Recovered/Not Resolved]
  - Back pain [Not Recovered/Not Resolved]
  - Nervousness [Not Recovered/Not Resolved]
  - Nausea [Not Recovered/Not Resolved]
  - Headache [Not Recovered/Not Resolved]
  - Mood swings [Not Recovered/Not Resolved]
  - Road traffic accident [Not Recovered/Not Resolved]
  - Menorrhagia [Not Recovered/Not Resolved]

NARRATIVE: CASE EVENT DATE: 201908
